FAERS Safety Report 9743885 (Version 1)
Quarter: 2013Q4

REPORT INFORMATION
  Report Type: Spontaneous
  Country: US (occurrence: US)
  Receive Date: 20131210
  Receipt Date: 20131210
  Transmission Date: 20140711
  Serious: No
  Sender: FDA-Public Use
  Company Number: US-BIOGENIDEC-2013BI097298

PATIENT
  Sex: Female

DRUGS (1)
  1. TECFIDERA [Suspect]
     Indication: PRODUCT USED FOR UNKNOWN INDICATION
     Dates: start: 20130601

REACTIONS (5)
  - Panic reaction [Unknown]
  - Hyperhidrosis [Unknown]
  - Middle insomnia [Unknown]
  - Menopausal symptoms [Unknown]
  - Flushing [Unknown]
